FAERS Safety Report 15880517 (Version 2)
Quarter: 2019Q1

REPORT INFORMATION
  Report Type: Spontaneous
  Country: CO (occurrence: CO)
  Receive Date: 20190128
  Receipt Date: 20190130
  Transmission Date: 20190417
  Serious: Yes (Other)
  Sender: FDA-Public Use
  Company Number: CO-JNJFOC-20190130505

PATIENT
  Age: 47 Year
  Sex: Female

DRUGS (1)
  1. XARELTO [Suspect]
     Active Substance: RIVAROXABAN
     Indication: PRODUCT USED FOR UNKNOWN INDICATION
     Route: 048
     Dates: start: 20170803, end: 20190116

REACTIONS (4)
  - Eye haemorrhage [Unknown]
  - Iris neovascularisation [Unknown]
  - Hyphaema [Unknown]
  - Sudden visual loss [Unknown]

NARRATIVE: CASE EVENT DATE: 20180214
